FAERS Safety Report 14189423 (Version 1)
Quarter: 2017Q4

REPORT INFORMATION
  Report Type: Spontaneous
  Country: US (occurrence: US)
  Receive Date: 20171115
  Receipt Date: 20171115
  Transmission Date: 20180321
  Serious: Yes (Other)
  Sender: FDA-Public Use
  Company Number: US-ASTRAZENECA-2017SF14527

PATIENT
  Sex: Female
  Weight: 81.6 kg

DRUGS (5)
  1. SYMBICORT [Suspect]
     Active Substance: BUDESONIDE\FORMOTEROL FUMARATE DIHYDRATE
     Indication: ASTHMA
     Dosage: EVERY 3 OR 4 DAYS, AS REQUIRED AS REQUIRED
     Route: 055
  2. PROAIR HFA [Concomitant]
     Active Substance: ALBUTEROL SULFATE
     Indication: INHALATION THERAPY
     Dosage: AS REQUIRED
     Route: 055
  3. SYMBICORT [Suspect]
     Active Substance: BUDESONIDE\FORMOTEROL FUMARATE DIHYDRATE
     Indication: ASTHMA
     Dosage: 80/4.5 AS REQUIRED AS REQUIRED
     Route: 055
  4. CANNABIS OIL [Concomitant]
     Indication: LIMB DISCOMFORT
     Route: 048
     Dates: start: 2010
  5. SYMBICORT [Suspect]
     Active Substance: BUDESONIDE\FORMOTEROL FUMARATE DIHYDRATE
     Indication: ASTHMA
     Dosage: 80/4.5 2 PUFFS DAILY
     Route: 055
     Dates: start: 2010

REACTIONS (4)
  - Weight decreased [Unknown]
  - Intentional product misuse [Unknown]
  - Urethral cancer [Unknown]
  - Dyskinesia [Unknown]
